FAERS Safety Report 8532621-9 (Version None)
Quarter: 2012Q3

REPORT INFORMATION
  Report Type: 
  Country: None (occurrence: None)
  Receive Date: 20120724
  Receipt Date: 20120712
  Transmission Date: 20120928
  Serious: Yes (Hospitalization)
  Sender: FDA-Public Use
  Company Number: US-BAYER-2012-070927

PATIENT
  Age: 37 Year
  Sex: Female

DRUGS (19)
  1. PREDNISONE [Concomitant]
     Dosage: 60 MG, UNK
     Dates: start: 20070810
  2. DEMADEX [Concomitant]
     Dosage: 250 MG, DAILY
     Route: 048
  3. KLONOPIN [Concomitant]
     Dosage: 0.5 MG, PRN
     Route: 048
  4. IMITREX [Concomitant]
     Indication: HEADACHE
     Dosage: 100 MG, PRN
     Route: 048
  5. TORADOL [Concomitant]
     Dosage: UNK
     Route: 030
     Dates: start: 20070820
  6. ALDOSTERONE ANTAGONISTS [Concomitant]
     Dosage: 250 UNK UNK
     Dates: start: 20060101
  7. YASMIN [Suspect]
     Dosage: UNK
  8. ASPIRIN [Concomitant]
     Dosage: 81 MG, DAILY
     Dates: start: 20070402
  9. LASIX [Concomitant]
     Dosage: 20 MG, DAILY
     Dates: start: 20070514
  10. SYMBYAX [Concomitant]
     Dosage: 6/25 MG DAILY
     Route: 048
  11. TORADOL [Concomitant]
     Dosage: UNK
     Route: 030
     Dates: start: 20070810
  12. MAXZIDE [Concomitant]
     Dosage: UNK
     Dates: end: 20070716
  13. METFORMIN HYDROCHLORIDE [Concomitant]
  14. VOLTAREN [Concomitant]
     Indication: PAIN
     Dosage: UNK UNK, PRN
     Dates: start: 20070810
  15. PREVACID [Concomitant]
     Dosage: 30 MG, DAILY
     Route: 048
  16. TOPROL-XL [Concomitant]
     Indication: HYPERTENSION
     Dosage: 50 MG, UNK
     Route: 048
  17. GLUCOPHAGE XR [Concomitant]
     Dosage: 500 MG, BID
     Route: 048
  18. SYNTHROID [Concomitant]
     Dosage: 50 MCG, DAILY
     Route: 048
  19. ASPIRIN [Concomitant]
     Dosage: 324 MG, UNK
     Dates: start: 20070810

REACTIONS (1)
  - PULMONARY EMBOLISM [None]
